FAERS Safety Report 20218664 (Version 2)
Quarter: 2022Q1

REPORT INFORMATION
  Report Type: Report from Study
  Country: GB (occurrence: GB)
  Receive Date: 20211222
  Receipt Date: 20220224
  Transmission Date: 20220424
  Serious: Yes (Other)
  Sender: FDA-Public Use
  Company Number: GB-JNJFOC-20211229905

PATIENT
  Sex: Male

DRUGS (4)
  1. TREMFYA [Suspect]
     Active Substance: GUSELKUMAB
     Indication: Psoriasis
     Route: 058
     Dates: start: 20201028
  2. RAMIPRIL [Concomitant]
     Active Substance: RAMIPRIL
     Route: 065
  3. LETROZOLE [Concomitant]
     Active Substance: LETROZOLE
     Route: 065
  4. ERGOCALCIFEROL [Concomitant]
     Active Substance: ERGOCALCIFEROL

REACTIONS (5)
  - Psoriatic arthropathy [Unknown]
  - Hot flush [Unknown]
  - Hair texture abnormal [Unknown]
  - Skin ulcer [Unknown]
  - Skin discolouration [Unknown]
